FAERS Safety Report 8886969 (Version 1)
Quarter: 2012Q4

REPORT INFORMATION
  Report Type: 
  Country: JP (occurrence: JP)
  Receive Date: 20121105
  Receipt Date: 20121105
  Transmission Date: 20130627
  Serious: Yes (Death, Hospitalization, Other)
  Sender: FDA-Public Use
  Company Number: JP-ROCHE-1148074

PATIENT
  Age: 8 None
  Sex: Male

DRUGS (20)
  1. AVASTIN [Suspect]
     Indication: COLON CANCER METASTATIC
     Dosage: Dosage is uncertain. 
Ten cool enforcement
     Route: 041
  2. AVASTIN [Suspect]
     Indication: COLON CANCER METASTATIC
     Dosage: Dosage is uncertain. Ten cool enforcement
     Route: 041
  3. AVASTIN [Suspect]
     Indication: COLON CANCER METASTATIC
     Dosage: Dosage is uncertain. 
Ten cool enforcement
     Route: 041
  4. AVASTIN [Suspect]
     Indication: COLON CANCER METASTATIC
     Dosage: Dosage is uncertain. 
One cool enforcement
     Route: 041
  5. FLUOROURACIL [Suspect]
     Indication: COLON CANCER METASTATIC
     Dosage: Dosage is uncertain. 
Ten cool enforcement
     Route: 040
  6. FLUOROURACIL [Suspect]
     Indication: COLON CANCER METASTATIC
     Dosage: Dosage is uncertain. 
Ten cool enforcement
     Route: 041
  7. FLUOROURACIL [Suspect]
     Indication: COLON CANCER METASTATIC
     Dosage: Dosage is uncertain. 
Ten cool enforcement
     Route: 040
  8. FLUOROURACIL [Suspect]
     Indication: COLON CANCER METASTATIC
     Dosage: Dosage is uncertain. 
Ten cool enforcement
     Route: 041
  9. FLUOROURACIL [Suspect]
     Indication: COLON CANCER METASTATIC
     Dosage: Dosage is uncertain. 
Ten cool enforcement
     Route: 040
  10. FLUOROURACIL [Suspect]
     Indication: COLON CANCER METASTATIC
     Dosage: Dosage is uncertain. 
Ten cool enforcement
     Route: 041
  11. FLUOROURACIL [Suspect]
     Indication: COLON CANCER METASTATIC
     Dosage: Uncertain dosage (It is a weight loss to 80%). 
One cool enforcement
     Route: 040
  12. FLUOROURACIL [Suspect]
     Indication: COLON CANCER METASTATIC
     Dosage: Uncertain dosage (It is a weight loss to 80%). 
One cool enforcement
     Route: 041
  13. IRINOTECAN HYDROCHLORIDE [Suspect]
     Indication: COLON CANCER METASTATIC
     Dosage: Dosage is uncertain. 
Ten cool enforcement
     Route: 041
  14. IRINOTECAN HYDROCHLORIDE [Suspect]
     Indication: COLON CANCER METASTATIC
     Dosage: Dosage is uncertain. 
One cool enforcement
     Route: 041
  15. ELPLAT [Concomitant]
     Indication: COLON CANCER METASTATIC
     Dosage: Dosage is uncertain. 
Ten cool enforcement
     Route: 041
  16. CALCIUM LEVOFOLINATE [Concomitant]
     Indication: COLON CANCER METASTATIC
     Dosage: Dosage is uncertain. 
Ten cool enforcement
     Route: 041
  17. CALCIUM LEVOFOLINATE [Concomitant]
     Indication: COLON CANCER METASTATIC
     Dosage: Dosage is uncertain. 
Ten cool enforcement
     Route: 041
  18. CALCIUM LEVOFOLINATE [Concomitant]
     Indication: COLON CANCER METASTATIC
     Dosage: Dosage is uncertain. 
Ten cool enforcement
     Route: 041
  19. CALCIUM LEVOFOLINATE [Concomitant]
     Indication: COLON CANCER METASTATIC
     Dosage: Dosage is uncertain. 
Ten cool enforcement
     Route: 041
  20. CALCIUM LEVOFOLINATE [Concomitant]
     Indication: COLON CANCER METASTATIC
     Dosage: Dosage is uncertain. 
One cool enforcement
     Route: 041

REACTIONS (7)
  - Stomatitis [Recovered/Resolved]
  - Decreased appetite [Unknown]
  - Infection [Recovered/Resolved]
  - Neutrophil count decreased [Unknown]
  - Diarrhoea [Unknown]
  - Pyrexia [Recovered/Resolved]
  - Disease progression [Fatal]
